FAERS Safety Report 5738739-8 (Version None)
Quarter: 2008Q2

REPORT INFORMATION
  Report Type: 
  Country: None (occurrence: None)
  Receive Date: 20080515
  Receipt Date: 20080505
  Transmission Date: 20081010
  Serious: Yes (Hospitalization)
  Sender: FDA-Public Use
  Company Number: IT-WYE-H03871308

PATIENT
  Age: 68 Year
  Sex: Male

DRUGS (8)
  1. PANTORC [Suspect]
     Indication: GASTRECTOMY
     Route: 048
     Dates: start: 20010101, end: 20080301
  2. REPAGLINIDE [Concomitant]
     Dosage: 2 MG, FREQUENCY UNKNOWN
     Route: 048
  3. FERRO-GRAD [Concomitant]
     Dosage: 525 MG, FREQUENCY UNKNOWN
     Route: 048
  4. LASIX [Concomitant]
     Dosage: 25 MG, FREQUENCY UNKNOWN
     Route: 048
  5. COUMADIN [Concomitant]
     Dosage: 5 MG, FREQUENCY UNKNOWN
     Route: 048
  6. ESKIM [Concomitant]
     Dosage: 1000 MG, FREQUENCY UNKNOWN
     Route: 048
  7. SINVACOR [Concomitant]
     Dosage: 20 MG, FREQUENCY UNKNOWN
     Route: 048
  8. TRIATEC [Concomitant]
     Dosage: 10 MG, FREQUENCY UNKNOWN
     Route: 048

REACTIONS (1)
  - ANAEMIA [None]
